FAERS Safety Report 6054341-5 (Version None)
Quarter: 2009Q1

REPORT INFORMATION
  Report Type: 
  Country: None (occurrence: None)
  Receive Date: 20090127
  Receipt Date: 20090116
  Transmission Date: 20090719
  Serious: Yes (Hospitalization, Congenital Anomaly)
  Sender: FDA-Public Use
  Company Number: FR-WYE-G02513508

PATIENT
  Sex: Male

DRUGS (4)
  1. EFFEXOR [Suspect]
     Indication: DEPRESSION
     Route: 064
     Dates: start: 20070701, end: 20070923
  2. EFFEXOR [Suspect]
     Dosage: 75 MG TOTAL DAILY
     Route: 064
     Dates: start: 20070924, end: 20071001
  3. EFFEXOR [Suspect]
     Route: 064
     Dates: start: 20071001, end: 20071101
  4. FOLIC ACID [Concomitant]
     Dosage: UNKNOWN
     Route: 064

REACTIONS (4)
  - ANAL ATRESIA [None]
  - DRUG EXPOSURE DURING PREGNANCY [None]
  - SOLITARY KIDNEY [None]
  - SPINE MALFORMATION [None]
